FAERS Safety Report 16810741 (Version 1)
Quarter: 2019Q4

REPORT INFORMATION
  Report Type: Spontaneous
  Country: US (occurrence: US)
  Receive Date: 20190916
  Receipt Date: 20190916
  Transmission Date: 20200122
  Serious: Yes (Other)
  Sender: FDA-Public Use
  Company Number: None

PATIENT
  Age: 74 Year
  Sex: Female

DRUGS (2)
  1. FASLODEX [Concomitant]
     Active Substance: FULVESTRANT
  2. CAPECITABINE. [Suspect]
     Active Substance: CAPECITABINE
     Indication: MALIGNANT NIPPLE NEOPLASM FEMALE
     Route: 048
     Dates: start: 20190205, end: 20190823

REACTIONS (2)
  - Therapy cessation [None]
  - Sinus operation [None]

NARRATIVE: CASE EVENT DATE: 20190823
